FAERS Safety Report 12618091 (Version 2)
Quarter: 2016Q3

REPORT INFORMATION
  Report Type: Spontaneous
  Country: US (occurrence: US)
  Receive Date: 20160803
  Receipt Date: 20160908
  Transmission Date: 20161109
  Serious: No
  Sender: FDA-Public Use
  Company Number: US-JNJFOC-20160719437

PATIENT
  Sex: Female

DRUGS (2)
  1. ZYRTEC [Suspect]
     Active Substance: CETIRIZINE HYDROCHLORIDE
     Indication: MULTIPLE ALLERGIES
     Dosage: ONE TABLET, 1-2X PER DAY (ONE AT 8AM AND ONE AT 1AM THE NEXT MORNING)
     Route: 048
  2. ZYRTEC [Suspect]
     Active Substance: CETIRIZINE HYDROCHLORIDE
     Indication: SINUS DISORDER
     Dosage: ONE TABLET, 1-2X PER DAY (ONE AT 8AM AND ONE AT 1AM THE NEXT MORNING)
     Route: 048

REACTIONS (4)
  - Off label use [Unknown]
  - Drug effect incomplete [Unknown]
  - Extra dose administered [Unknown]
  - Product use issue [Unknown]
